FAERS Safety Report 7245532-6 (Version None)
Quarter: 2011Q1

REPORT INFORMATION
  Report Type: 
  Country: None (occurrence: None)
  Receive Date: 20110126
  Receipt Date: 20110124
  Transmission Date: 20110831
  Serious: Yes (Hospitalization)
  Sender: FDA-Public Use
  Company Number: CA-ABBOTT-10P-028-0658795-00

PATIENT
  Sex: Male
  Weight: 135.29 kg

DRUGS (1)
  1. HUMIRA [Suspect]
     Indication: PSORIASIS
     Route: 058
     Dates: start: 20090807, end: 20090901

REACTIONS (4)
  - SKIN DISORDER [None]
  - DRUG INEFFECTIVE [None]
  - PSORIASIS [None]
  - PSORIATIC ARTHROPATHY [None]
